FAERS Safety Report 7199859-7 (Version None)
Quarter: 2010Q4

REPORT INFORMATION
  Report Type: 
  Country: None (occurrence: None)
  Receive Date: 20101228
  Receipt Date: 20101223
  Transmission Date: 20110411
  Serious: Yes (Death)
  Sender: FDA-Public Use
  Company Number: DE-ROCHE-750215

PATIENT
  Sex: Male
  Weight: 74 kg

DRUGS (3)
  1. CAPECITABINE [Suspect]
     Route: 065
  2. ERBITUX [Suspect]
     Route: 065
  3. IRINOTECAN HCL [Suspect]
     Route: 065

REACTIONS (1)
  - SEPSIS [None]
